FAERS Safety Report 5345011-7 (Version None)
Quarter: 2007Q2

REPORT INFORMATION
  Report Type: 
  Country: None (occurrence: None)
  Receive Date: 20070416
  Receipt Date: 20061228
  Transmission Date: 20071010
  Serious: No
  Sender: FDA-Public Use
  Company Number: 2006SP004494

PATIENT
  Age: 83 Year
  Sex: Male
  Weight: 72.5755 kg

DRUGS (3)
  1. LUNESTA [Suspect]
     Indication: INSOMNIA
     Dosage: 3 MG;ORAL
     Route: 048
     Dates: start: 20060101, end: 20060101
  2. METOPROLOL SUCCINATE [Concomitant]
  3. TEMAZEPAM [Concomitant]

REACTIONS (1)
  - MIDDLE INSOMNIA [None]
